FAERS Safety Report 4880826-0 (Version None)
Quarter: 2005Q4

REPORT INFORMATION
  Report Type: 
  Country: None (occurrence: None)
  Receive Date: 20051223
  Receipt Date: 20051108
  Transmission Date: 20060501
  Serious: No
  Sender: FDA-Public Use
  Company Number: 05P-163-0316736-00

PATIENT
  Age: 56 Year
  Sex: Female
  Weight: 92.5338 kg

DRUGS (11)
  1. HUMIRA [Suspect]
     Indication: PSORIATIC ARTHROPATHY
     Dosage: 40 MG, 1 IN 2 WK, SUBCUTANEOUS
     Route: 058
     Dates: start: 20051019
  2. CLONAZEPAM [Concomitant]
  3. LEXAPRO [Concomitant]
  4. MELOXICAM [Concomitant]
  5. METAXALONE [Concomitant]
  6. ZOCOR [Concomitant]
  7. LODRANE [Concomitant]
  8. RANITIDINE HYDROCHLORIDE [Concomitant]
  9. CYMBALTA [Concomitant]
  10. FUROSEMIDE [Concomitant]
  11. POTASSIUM [Concomitant]

REACTIONS (1)
  - DIARRHOEA [None]
